FAERS Safety Report 4835734-8 (Version None)
Quarter: 2005Q4

REPORT INFORMATION
  Report Type: 
  Country: None (occurrence: None)
  Receive Date: 20051123
  Receipt Date: 20051115
  Transmission Date: 20060501
  Serious: Yes (Other)
  Sender: FDA-Public Use
  Company Number: US-JNJFOC-20050904477

PATIENT
  Age: 38 Year
  Sex: Female
  Weight: 55.79 kg

DRUGS (10)
  1. REMICADE [Suspect]
     Indication: SJOGREN'S SYNDROME
     Route: 042
  2. REMICADE [Suspect]
     Indication: ANKYLOSING SPONDYLITIS
     Route: 042
  3. REMICADE [Suspect]
     Indication: CROHN'S DISEASE
     Route: 042
  4. TIAZAC [Concomitant]
     Indication: HYPERTENSION
  5. NEXIUM [Concomitant]
  6. VIVELLE [Concomitant]
     Indication: HORMONE REPLACEMENT THERAPY
  7. ADVAIR DISKUS 100/50 [Concomitant]
  8. ADVAIR DISKUS 100/50 [Concomitant]
     Indication: ASTHMA
     Dosage: 1 DOSE = 1 PUFF
  9. ALBUTEROL [Concomitant]
  10. TOPROL-XL [Concomitant]
     Indication: HYPERTENSION

REACTIONS (2)
  - DERMATITIS [None]
  - DERMATITIS PSORIASIFORM [None]
